FAERS Safety Report 8603803-2 (Version None)
Quarter: 2012Q3

REPORT INFORMATION
  Report Type: 
  Country: None (occurrence: None)
  Receive Date: 20120818
  Receipt Date: 20120806
  Transmission Date: 20120928
  Serious: Yes (Other)
  Sender: FDA-Public Use
  Company Number: CH-TEVA-352495ISR

PATIENT
  Age: 36 Year
  Sex: Male

DRUGS (1)
  1. FINASTERIDE [Suspect]
     Indication: ALOPECIA
     Dosage: 1 MILLIGRAM DAILY;
     Route: 065

REACTIONS (2)
  - TESTIS CANCER [None]
  - GYNAECOMASTIA [None]
